FAERS Safety Report 14066963 (Version 6)
Quarter: 2018Q3

REPORT INFORMATION
  Report Type: Report from Study
  Country: CA (occurrence: CA)
  Receive Date: 20171010
  Receipt Date: 20180716
  Transmission Date: 20181010
  Serious: Yes (Other)
  Sender: FDA-Public Use
  Company Number: CA-BRISTOL-MYERS SQUIBB COMPANY-BMS-2017-089417

PATIENT
  Age: 73 Year
  Sex: Female

DRUGS (1)
  1. ABATACEPT [Suspect]
     Active Substance: ABATACEPT
     Indication: RHEUMATOID ARTHRITIS
     Dosage: 750 MG, Q4WK
     Route: 042
     Dates: start: 20170804

REACTIONS (10)
  - Infusion site swelling [Recovered/Resolved]
  - Infusion site oedema [Recovered/Resolved]
  - Malaise [Unknown]
  - Contusion [Unknown]
  - Joint injury [Unknown]
  - Arthralgia [Not Recovered/Not Resolved]
  - Road traffic accident [Unknown]
  - Fall [Unknown]
  - Joint swelling [Unknown]
  - Hand fracture [Unknown]

NARRATIVE: CASE EVENT DATE: 20171129
